FAERS Safety Report 7800023-6 (Version None)
Quarter: 2011Q4

REPORT INFORMATION
  Report Type: 
  Country: None (occurrence: None)
  Receive Date: 20111004
  Receipt Date: 20110922
  Transmission Date: 20120403
  Serious: Yes (Life-Threatening, Hospitalization)
  Sender: FDA-Public Use
  Company Number: WAES 1003USA00477

PATIENT
  Age: 17 Year
  Sex: Female
  Weight: 69.8539 kg

DRUGS (2)
  1. PENTAMIDINE ISETHIONATE [Concomitant]
  2. ISENTRESS [Suspect]
     Indication: HIV INFECTION
     Dosage: 400 MG/BID/PO
     Route: 048
     Dates: start: 20080208, end: 20090114

REACTIONS (60)
  - EXFOLIATIVE RASH [None]
  - NYSTAGMUS [None]
  - ARTHRALGIA [None]
  - RHINOVIRUS INFECTION [None]
  - DISEASE RECURRENCE [None]
  - ELECTROCARDIOGRAM QT PROLONGED [None]
  - SUICIDAL IDEATION [None]
  - TYPE 2 DIABETES MELLITUS [None]
  - MYALGIA [None]
  - DEAFNESS [None]
  - TACHYCARDIA [None]
  - DEHYDRATION [None]
  - RENAL FAILURE ACUTE [None]
  - THROMBOTIC THROMBOCYTOPENIC PURPURA [None]
  - LETHARGY [None]
  - ATELECTASIS [None]
  - RASH GENERALISED [None]
  - FACE OEDEMA [None]
  - CYANOSIS [None]
  - TOOTHACHE [None]
  - TREATMENT NONCOMPLIANCE [None]
  - DIARRHOEA [None]
  - DEPRESSION [None]
  - TOXICITY TO VARIOUS AGENTS [None]
  - FLUID OVERLOAD [None]
  - SEPSIS [None]
  - HAEMOLYTIC URAEMIC SYNDROME [None]
  - AGGRESSION [None]
  - BRONCHIECTASIS [None]
  - RASH PRURITIC [None]
  - PNEUMONIA [None]
  - ALOPECIA [None]
  - EAR DISORDER [None]
  - ENCEPHALOPATHY [None]
  - HYPONATRAEMIA [None]
  - TACHYPNOEA [None]
  - RASH ERYTHEMATOUS [None]
  - OCULAR HYPERAEMIA [None]
  - INDURATION [None]
  - HERPES ZOSTER [None]
  - EAR INFECTION [None]
  - METABOLIC ACIDOSIS [None]
  - HEPATIC STEATOSIS [None]
  - RESPIRATORY RATE INCREASED [None]
  - OPPORTUNISTIC INFECTION [None]
  - PAIN [None]
  - TREMOR [None]
  - AGITATION [None]
  - THROMBOCYTOPENIA [None]
  - HYPOKALAEMIA [None]
  - ELECTROLYTE IMBALANCE [None]
  - PLEURAL EFFUSION [None]
  - FUNGAEMIA [None]
  - ANAEMIA HAEMOLYTIC AUTOIMMUNE [None]
  - RASH MACULO-PAPULAR [None]
  - METAPNEUMOVIRUS INFECTION [None]
  - BLOOD ALBUMIN DECREASED [None]
  - DIABETIC KETOACIDOSIS [None]
  - SWELLING [None]
  - PANCREATITIS [None]
